APPROVED DRUG PRODUCT: CLOZAPINE
Active Ingredient: CLOZAPINE
Strength: 12.5MG
Dosage Form/Route: TABLET;ORAL
Application: A074949 | Product #003
Applicant: IVAX PHARMACEUTICALS INC SUB TEVA PHARMACEUTICALS USA
Approved: Jul 31, 2003 | RLD: No | RS: No | Type: RX